FAERS Safety Report 25941531 (Version 2)
Quarter: 2025Q4

REPORT INFORMATION
  Report Type: Spontaneous
  Country: AU (occurrence: AU)
  Receive Date: 20251020
  Receipt Date: 20251031
  Transmission Date: 20260118
  Serious: Yes (Hospitalization)
  Sender: NOVO NORDISK
  Company Number: AU-NOVOPROD-1541622

PATIENT
  Sex: Female

DRUGS (2)
  1. WEGOVY [Suspect]
     Active Substance: SEMAGLUTIDE
     Dosage: 2.4MG
     Dates: end: 20250804
  2. WEGOVY [Suspect]
     Active Substance: SEMAGLUTIDE
     Indication: Product used for unknown indication
     Dosage: 0.25MG
     Dates: start: 20250801

REACTIONS (3)
  - Gastrointestinal disorder [Unknown]
  - Accidental overdose [Unknown]
  - Wrong technique in product usage process [Unknown]
